FAERS Safety Report 13463602 (Version 1)
Quarter: 2017Q2

REPORT INFORMATION
  Report Type: Report from Study
  Country: US (occurrence: US)
  Receive Date: 20170420
  Receipt Date: 20170420
  Transmission Date: 20170830
  Serious: Yes (Death, Hospitalization)
  Sender: FDA-Public Use
  Company Number: US-ACTELION-A-NJ2017-148201

PATIENT
  Age: 84 Year
  Sex: Female

DRUGS (2)
  1. ESBRIET [Suspect]
     Active Substance: PIRFENIDONE
     Indication: PRODUCT USED FOR UNKNOWN INDICATION
     Route: 065
  2. TRACLEER [Suspect]
     Active Substance: BOSENTAN
     Indication: PULMONARY HYPERTENSION
     Dosage: 125 MG, BID
     Route: 048
     Dates: start: 20111128, end: 20170406

REACTIONS (10)
  - Anaemia [Unknown]
  - Pulmonary fibrosis [Fatal]
  - Pain [Unknown]
  - Transfusion [Unknown]
  - Dyspnoea [Unknown]
  - Dysphagia [Unknown]
  - Oxygen consumption increased [Not Recovered/Not Resolved]
  - Gastric disorder [Unknown]
  - Concomitant disease progression [Fatal]
  - Asthenia [Unknown]
